FAERS Safety Report 9323654 (Version 1)
Quarter: 2013Q2

REPORT INFORMATION
  Report Type: Report from Study
  Country: DE (occurrence: DE)
  Receive Date: 20130603
  Receipt Date: 20130603
  Transmission Date: 20140414
  Serious: Yes (Hospitalization, Other)
  Sender: FDA-Public Use
  Company Number: PHHY2013DE054090

PATIENT
  Age: 78 Year
  Sex: Female

DRUGS (1)
  1. EXELON PATCH [Suspect]
     Dosage: 9.5 MG, DAILY
     Route: 062
     Dates: start: 201206

REACTIONS (7)
  - Atrial fibrillation [Not Recovered/Not Resolved]
  - Dizziness [Not Recovered/Not Resolved]
  - Laceration [Not Recovered/Not Resolved]
  - Fall [Not Recovered/Not Resolved]
  - Dementia [Unknown]
  - Aggression [Unknown]
  - Gait disturbance [Not Recovered/Not Resolved]
